FAERS Safety Report 10339783 (Version 1)
Quarter: 2014Q3

REPORT INFORMATION
  Report Type: Spontaneous
  Country: CN (occurrence: CN)
  Receive Date: 20140724
  Receipt Date: 20140724
  Transmission Date: 20150326
  Serious: Yes (Hospitalization)
  Sender: FDA-Public Use
  Company Number: CN-PFIZER INC-2014203306

PATIENT
  Age: 59 Year
  Sex: Female

DRUGS (1)
  1. CORDARONE [Suspect]
     Active Substance: AMIODARONE HYDROCHLORIDE
     Indication: ARRHYTHMIA
     Dosage: 1 DF, DAILY
     Route: 048
     Dates: start: 20101103, end: 20130110

REACTIONS (5)
  - Insomnia [Recovering/Resolving]
  - Hyperthyroidism [Recovering/Resolving]
  - Marasmus [Recovering/Resolving]
  - Palpitations [Recovering/Resolving]
  - Hepatic function abnormal [Recovering/Resolving]

NARRATIVE: CASE EVENT DATE: 2013
